FAERS Safety Report 8015983-0 (Version None)
Quarter: 2011Q4

REPORT INFORMATION
  Report Type: 
  Country: None (occurrence: None)
  Receive Date: 20111230
  Receipt Date: 20111230
  Transmission Date: 20120403
  Serious: No
  Sender: FDA-Public Use
  Company Number: None

PATIENT
  Age: 8 Year
  Sex: Male
  Weight: 34.4 kg

DRUGS (1)
  1. HUMIRA [Suspect]
     Indication: JUVENILE ARTHRITIS
     Dosage: 40MG
     Route: 058
     Dates: start: 20110925, end: 20111224

REACTIONS (6)
  - PRURITUS [None]
  - PAIN IN EXTREMITY [None]
  - FEELING HOT [None]
  - DIARRHOEA [None]
  - ABDOMINAL PAIN UPPER [None]
  - OEDEMA PERIPHERAL [None]
